FAERS Safety Report 9976920 (Version 1)
Quarter: 2014Q1

REPORT INFORMATION
  Report Type: Spontaneous
  Country: US (occurrence: US)
  Receive Date: 20140306
  Receipt Date: 20140306
  Transmission Date: 20141002
  Serious: No
  Sender: FDA-Public Use
  Company Number: US-ABBVIE-13P-163-1166204-00

PATIENT
  Age: 21 Year
  Sex: Female
  Weight: 52.21 kg

DRUGS (4)
  1. HUMIRA [Suspect]
     Indication: CROHN^S DISEASE
     Dosage: STARTING DOSE
     Dates: start: 20131004, end: 20131004
  2. HUMIRA [Suspect]
     Dosage: ON DAY 15
     Dates: start: 20131018, end: 20131018
  3. HUMIRA [Suspect]
     Dates: start: 20131101, end: 20131101
  4. VIVAZ [Concomitant]
     Indication: ATTENTION DEFICIT/HYPERACTIVITY DISORDER

REACTIONS (1)
  - Incorrect dose administered [Unknown]
